FAERS Safety Report 11578228 (Version 4)
Quarter: 2016Q1

REPORT INFORMATION
  Report Type: Report from Study
  Country: DE (occurrence: DE)
  Receive Date: 20150930
  Receipt Date: 20160211
  Transmission Date: 20160525
  Serious: Yes (Death, Hospitalization, Other)
  Sender: FDA-Public Use
  Company Number: PHHY2015DE057701

PATIENT
  Sex: Male
  Weight: 68 kg

DRUGS (1)
  1. AFINITOR [Suspect]
     Active Substance: EVEROLIMUS
     Indication: METASTATIC RENAL CELL CARCINOMA
     Dosage: 10 MG, QD (DAILY)
     Route: 048
     Dates: start: 20140310, end: 20141021

REACTIONS (13)
  - Metastases to bone [Fatal]
  - Seizure [Fatal]
  - Joint swelling [Unknown]
  - No therapeutic response [Unknown]
  - Metastases to central nervous system [Fatal]
  - Pyrexia [Unknown]
  - Malignant neoplasm progression [Fatal]
  - Rash [Unknown]
  - Neurological symptom [Fatal]
  - Cerebral haemorrhage [Unknown]
  - Haemoglobin decreased [Unknown]
  - Hepatic cyst [Unknown]
  - Lymphadenopathy mediastinal [Fatal]

NARRATIVE: CASE EVENT DATE: 20140515
